FAERS Safety Report 19974041 (Version 1)
Quarter: 2021Q4

REPORT INFORMATION
  Report Type: Spontaneous
  Country: US (occurrence: US)
  Receive Date: 20211020
  Receipt Date: 20211020
  Transmission Date: 20220303
  Serious: Yes (Life-Threatening)
  Sender: FDA-Public Use
  Company Number: None

PATIENT
  Age: 33 Year
  Sex: Female
  Weight: 112.5 kg

DRUGS (12)
  1. LAMICTAL [Suspect]
     Active Substance: LAMOTRIGINE
     Indication: Bipolar disorder
     Dosage: ?          QUANTITY:0.5 TABLET(S);
     Route: 048
     Dates: start: 20211008, end: 20211018
  2. NALFON [Concomitant]
     Active Substance: FENOPROFEN CALCIUM
  3. LITHIUM [Concomitant]
     Active Substance: LITHIUM
  4. PRAZOSIN [Concomitant]
     Active Substance: PRAZOSIN
  5. KLONOPIN [Concomitant]
     Active Substance: CLONAZEPAM
  6. LATUDA [Concomitant]
     Active Substance: LURASIDONE HYDROCHLORIDE
  7. LYRICA [Concomitant]
     Active Substance: PREGABALIN
  8. MIRENA [Concomitant]
     Active Substance: LEVONORGESTREL
  9. VITAMIN D [Concomitant]
     Active Substance: VITAMIN D NOS
  10. FISH OIL [Concomitant]
     Active Substance: FISH OIL
  11. GLUCOSAMINE CHONDROITIN WITH MSM [Concomitant]
  12. CANNABIDIOL\HERBALS [Concomitant]
     Active Substance: CANNABIDIOL\HERBALS

REACTIONS (6)
  - Urticaria [None]
  - Pruritus genital [None]
  - Pain of skin [None]
  - Lip swelling [None]
  - Swollen tongue [None]
  - Rash [None]

NARRATIVE: CASE EVENT DATE: 20211013
